FAERS Safety Report 8454278-8 (Version None)
Quarter: 2012Q2

REPORT INFORMATION
  Report Type: 
  Country: None (occurrence: None)
  Receive Date: 20120620
  Receipt Date: 20120618
  Transmission Date: 20120825
  Serious: No
  Sender: FDA-Public Use
  Company Number: US-BAYER-2012-060758

PATIENT
  Age: 49 Year
  Sex: Male
  Weight: 122 kg

DRUGS (1)
  1. ALEVE (CAPLET) [Suspect]
     Indication: PAIN
     Dosage: 3 DF, QD

REACTIONS (2)
  - NO ADVERSE EVENT [None]
  - ORAL HERPES [None]
